FAERS Safety Report 6278619-5 (Version None)
Quarter: 2009Q3

REPORT INFORMATION
  Report Type: 
  Country: None (occurrence: None)
  Receive Date: 20090722
  Receipt Date: 20090403
  Transmission Date: 20100115
  Serious: No
  Sender: FDA-Public Use
  Company Number: US-BAUSCH-2009BL001527

PATIENT
  Age: 69 Year
  Sex: Female

DRUGS (4)
  1. OPCON-A [Suspect]
     Indication: OCULAR HYPERAEMIA
     Route: 047
     Dates: start: 20090301, end: 20090301
  2. OPCON-A [Suspect]
     Indication: HYPERSENSITIVITY
     Route: 047
     Dates: start: 20090301, end: 20090301
  3. BLINK AND CLEAR [Concomitant]
  4. BOSTON SIMPLUS [Concomitant]
     Route: 047

REACTIONS (2)
  - DRUG INEFFECTIVE [None]
  - MYDRIASIS [None]
